FAERS Safety Report 6903733-8 (Version None)
Quarter: 2010Q3

REPORT INFORMATION
  Report Type: 
  Country: None (occurrence: None)
  Receive Date: 20100804
  Receipt Date: 20081124
  Transmission Date: 20110219
  Serious: No
  Sender: FDA-Public Use
  Company Number: US-PFIZER INC-2008085029

PATIENT
  Sex: Female
  Weight: 69.4 kg

DRUGS (3)
  1. LYRICA [Suspect]
     Indication: FIBROMYALGIA
     Route: 048
     Dates: start: 20080924
  2. LYRICA [Suspect]
     Indication: NEURITIS
  3. ZOLOFT [Concomitant]
     Dates: end: 20080801

REACTIONS (1)
  - SKIN EXFOLIATION [None]
